FAERS Safety Report 13630405 (Version 1)
Quarter: 2017Q2

REPORT INFORMATION
  Report Type: Spontaneous
  Country: US (occurrence: US)
  Receive Date: 20170531
  Receipt Date: 20170531
  Transmission Date: 20170830
  Serious: No
  Sender: FDA-Public Use
  Company Number: US-ASTELLAS-1300560

PATIENT
  Age: 57 Year
  Sex: Female
  Weight: 69.01 kg

DRUGS (1)
  1. TARCEVA [Suspect]
     Active Substance: ERLOTINIB HYDROCHLORIDE
     Indication: LUNG NEOPLASM MALIGNANT
     Route: 048
     Dates: start: 20131005

REACTIONS (12)
  - Vomiting [Unknown]
  - Hair texture abnormal [Unknown]
  - Pruritus [Recovering/Resolving]
  - Faeces discoloured [Recovered/Resolved]
  - Dry skin [Not Recovered/Not Resolved]
  - Hair growth abnormal [Not Recovered/Not Resolved]
  - Hair texture abnormal [Not Recovered/Not Resolved]
  - Rash [Unknown]
  - Rash [Not Recovered/Not Resolved]
  - Diarrhoea [Unknown]
  - Arthralgia [Unknown]
  - Haematochezia [Unknown]

NARRATIVE: CASE EVENT DATE: 20131120
